FAERS Safety Report 9398774 (Version 1)
Quarter: 2013Q3

REPORT INFORMATION
  Report Type: Report from Study
  Country: US (occurrence: US)
  Receive Date: 20130712
  Receipt Date: 20130712
  Transmission Date: 20140515
  Serious: Yes (Life-Threatening, Hospitalization)
  Sender: FDA-Public Use
  Company Number: US-009507513-1307USA005800

PATIENT
  Age: 33 Year
  Sex: Female

DRUGS (1)
  1. NUVARING [Suspect]
     Indication: CONTRACEPTION
     Dosage: ENG 120 UG/EE 15 UG PER 24 H
     Route: 067
     Dates: start: 201102, end: 201107

REACTIONS (1)
  - Deep vein thrombosis [Unknown]
